FAERS Safety Report 11839053 (Version 1)
Quarter: 2015Q4

REPORT INFORMATION
  Report Type: Spontaneous
  Country: US (occurrence: US)
  Receive Date: 20151216
  Receipt Date: 20151216
  Transmission Date: 20160305
  Serious: No
  Sender: FDA-Public Use
  Company Number: US-009507513-1512USA008074

PATIENT
  Sex: Female

DRUGS (2)
  1. NOXAFIL [Suspect]
     Active Substance: POSACONAZOLE
     Dosage: 100 MG, UNK
     Route: 048
  2. RAPAMUNE [Concomitant]
     Active Substance: SIROLIMUS

REACTIONS (1)
  - Adverse event [Recovering/Resolving]
